FAERS Safety Report 4986433-3 (Version None)
Quarter: 2006Q2

REPORT INFORMATION
  Report Type: 
  Country: None (occurrence: None)
  Receive Date: 20060428
  Receipt Date: 20060424
  Transmission Date: 20061013
  Serious: Yes (Death, Hospitalization)
  Sender: FDA-Public Use
  Company Number: FR-BRISTOL-MYERS SQUIBB COMPANY-13358502

PATIENT
  Age: 82 Year
  Sex: Male

DRUGS (4)
  1. UFT [Suspect]
     Indication: PROSTATE CANCER METASTATIC
     Route: 048
     Dates: start: 20060412
  2. TAXOL [Suspect]
     Indication: PROSTATE CANCER METASTATIC
     Route: 042
     Dates: start: 20060412, end: 20060412
  3. ATENOLOL [Concomitant]
     Route: 048
  4. DURAGESIC-100 [Concomitant]
     Route: 062

REACTIONS (3)
  - DEHYDRATION [None]
  - DIARRHOEA [None]
  - FAILURE TO THRIVE [None]
